FAERS Safety Report 19861630 (Version 2)
Quarter: 2021Q3

REPORT INFORMATION
  Report Type: Spontaneous
  Country: DE (occurrence: DE)
  Receive Date: 20210921
  Receipt Date: 20210928
  Transmission Date: 20211014
  Serious: Yes (Hospitalization)
  Sender: FDA-Public Use
  Company Number: DE-MYLANLABS-2021M1063201

PATIENT
  Sex: Male

DRUGS (12)
  1. VALSARTAN. [Suspect]
     Active Substance: VALSARTAN
     Dosage: 80 MILLIGRAM, QD
     Route: 065
     Dates: start: 201905
  2. VALSARTAN. [Suspect]
     Active Substance: VALSARTAN
     Dosage: 160 MILLIGRAM, QD
     Route: 065
     Dates: start: 20170717, end: 201905
  3. VALSARTAN 1A PHARMA [Suspect]
     Active Substance: VALSARTAN
     Dosage: 160 MILLIGRAM, QD (MORNING)
     Route: 065
     Dates: start: 201802, end: 20180515
  4. IBUPROFEN. [Concomitant]
     Active Substance: IBUPROFEN
     Indication: PRODUCT USED FOR UNKNOWN INDICATION
     Dosage: 400 DOSAGE FORM, PRN
     Route: 065
  5. VALSARTAN. [Suspect]
     Active Substance: VALSARTAN
     Dosage: 80 MILLIGRAM, QD
     Route: 065
     Dates: start: 20190705
  6. VALSARTAN 1A PHARMA [Suspect]
     Active Substance: VALSARTAN
     Indication: HYPERTENSION
     Dosage: 160 MILLIGRAM, QD
     Route: 065
     Dates: start: 201802, end: 20180515
  7. VALSARTAN. [Suspect]
     Active Substance: VALSARTAN
     Indication: ESSENTIAL HYPERTENSION
     Dosage: 160 MILLIGRAM, AM
     Route: 065
  8. VALSARTAN. [Suspect]
     Active Substance: VALSARTAN
     Dosage: 80 MILLIGRAM, QD (MORNING)
     Route: 065
  9. FOLSAN [Concomitant]
     Active Substance: FOLIC ACID
     Indication: PRODUCT USED FOR UNKNOWN INDICATION
     Dosage: 5 MILLIGRAM
     Route: 065
     Dates: start: 2019
  10. VALSARTAN. [Suspect]
     Active Substance: VALSARTAN
     Indication: HYPERTENSION
     Dosage: 80 MILLIGRAM, QD
     Route: 065
     Dates: start: 2014
  11. VALSARTAN 1A PHARMA [Suspect]
     Active Substance: VALSARTAN
     Indication: ESSENTIAL HYPERTENSION
     Dosage: 80 MG, QD (MORNING)
     Route: 065
     Dates: start: 201612, end: 201707
  12. PANTOPRAZOLE [Concomitant]
     Active Substance: PANTOPRAZOLE
     Indication: PRODUCT USED FOR UNKNOWN INDICATION
     Dosage: 40 DOSAGE FORM, QD
     Route: 065
     Dates: start: 2016, end: 201906

REACTIONS (15)
  - Merycism [Unknown]
  - Blood pressure increased [Unknown]
  - Emotional distress [Unknown]
  - Terminal insomnia [Unknown]
  - Mental disorder [Unknown]
  - Nervousness [Unknown]
  - Initial insomnia [Unknown]
  - Sleep disorder [Unknown]
  - Quality of life decreased [Unknown]
  - Breast pain [Unknown]
  - Fear [Unknown]
  - Disturbance in attention [Unknown]
  - Product contamination [Unknown]
  - Back pain [Unknown]
  - Nightmare [Unknown]

NARRATIVE: CASE EVENT DATE: 2018
